FAERS Safety Report 24213387 (Version 1)
Quarter: 2024Q3

REPORT INFORMATION
  Report Type: Spontaneous
  Country: US (occurrence: US)
  Receive Date: 20240815
  Receipt Date: 20240815
  Transmission Date: 20241017
  Serious: No
  Sender: ROCHE
  Company Number: US-ROCHE-10000050410

PATIENT
  Age: 74 Year
  Sex: Female
  Weight: 68.95 kg

DRUGS (10)
  1. KADCYLA [Suspect]
     Active Substance: ADO-TRASTUZUMAB EMTANSINE
     Indication: Breast cancer metastatic
     Route: 042
     Dates: start: 202402
  2. HERCEPTIN [Suspect]
     Active Substance: TRASTUZUMAB
     Indication: Breast cancer metastatic
     Route: 065
  3. PERJETA [Suspect]
     Active Substance: PERTUZUMAB
     Indication: Breast cancer metastatic
     Route: 065
  4. LEVOTHYROXINE [Concomitant]
     Active Substance: LEVOTHYROXINE\LEVOTHYROXINE SODIUM
     Indication: Hypothyroidism
     Route: 048
  5. XANAX [Concomitant]
     Active Substance: ALPRAZOLAM
     Indication: Anxiety
     Route: 048
  6. ADRIAMYCIN [Concomitant]
     Active Substance: DOXORUBICIN HYDROCHLORIDE
     Indication: HER2 positive breast cancer
  7. NEULASTA [Concomitant]
     Active Substance: PEGFILGRASTIM
     Indication: HER2 positive breast cancer
  8. TYKERB [Concomitant]
     Active Substance: LAPATINIB DITOSYLATE
     Indication: HER2 positive breast cancer
  9. TAXOL [Concomitant]
     Active Substance: PACLITAXEL
     Indication: HER2 positive breast cancer
  10. NERVINE [Concomitant]
     Indication: Neuropathy peripheral

REACTIONS (10)
  - Product dose omission issue [Unknown]
  - Pyrexia [Recovered/Resolved]
  - Fatigue [Recovered/Resolved]
  - Neuropathy peripheral [Unknown]
  - Alopecia [Unknown]
  - Diarrhoea [Unknown]
  - Dysphonia [Unknown]
  - Decreased appetite [Unknown]
  - Somnolence [Unknown]
  - Ageusia [Unknown]

NARRATIVE: CASE EVENT DATE: 20240201
